FAERS Safety Report 17711645 (Version 1)
Quarter: 2020Q2

REPORT INFORMATION
  Report Type: Spontaneous
  Country: AU (occurrence: AU)
  Receive Date: 20200427
  Receipt Date: 20200427
  Transmission Date: 20200714
  Serious: Yes (Life-Threatening, Hospitalization, Other)
  Sender: FDA-Public Use
  Company Number: AU-FERRINGPH-2020FE02575

PATIENT
  Age: 73 Year
  Sex: Female

DRUGS (9)
  1. SODIUM PICOSULFATE, MGO, CITRIC ACID [Suspect]
     Active Substance: ANHYDROUS CITRIC ACID\MAGNESIUM OXIDE\SODIUM PICOSULFATE
     Indication: COLONOSCOPY
     Route: 065
  2. BISOPROLOL [Concomitant]
     Active Substance: BISOPROLOL
  3. SALBUTAMOL [Concomitant]
     Active Substance: ALBUTEROL
  4. FLUTICASONE;SALMETEROL [Concomitant]
     Active Substance: FLUTICASONE PROPIONATE\SALMETEROL XINAFOATE
  5. AZATHIOPRINE. [Concomitant]
     Active Substance: AZATHIOPRINE
     Indication: INFLAMMATORY BOWEL DISEASE
  6. ROSUVASTATIN. [Concomitant]
     Active Substance: ROSUVASTATIN
  7. ASPIRIN (E.C.) [Concomitant]
     Active Substance: ASPIRIN
  8. PERINDOPRIL [Concomitant]
     Active Substance: PERINDOPRIL
  9. PANTOPRAZOL A [Concomitant]

REACTIONS (3)
  - Vomiting [Recovered/Resolved]
  - Hypovolaemic shock [Recovered/Resolved]
  - Contraindicated product prescribed [Recovered/Resolved]
